FAERS Safety Report 7406770-2 (Version None)
Quarter: 2011Q2

REPORT INFORMATION
  Report Type: 
  Country: None (occurrence: None)
  Receive Date: 20110406
  Receipt Date: 20110406
  Transmission Date: 20111010
  Serious: Yes (Other)
  Sender: FDA-Public Use
  Company Number: None

PATIENT

DRUGS (1)
  1. SEROQUEL [Suspect]
     Dates: start: 20100101, end: 20110101

REACTIONS (6)
  - BLOOD CHOLESTEROL INCREASED [None]
  - POST-TRAUMATIC STRESS DISORDER [None]
  - STRESS [None]
  - BLOOD GLUCOSE INCREASED [None]
  - DEPRESSION [None]
  - PANIC ATTACK [None]
